FAERS Safety Report 8517475-9 (Version None)
Quarter: 2012Q3

REPORT INFORMATION
  Report Type: 
  Country: None (occurrence: None)
  Receive Date: 20120718
  Receipt Date: 20120707
  Transmission Date: 20120928
  Serious: Yes (Hospitalization)
  Sender: FDA-Public Use
  Company Number: KR-BAYER-2012-061148

PATIENT
  Age: 57 Year
  Sex: Female

DRUGS (10)
  1. NEXAVAR [Suspect]
     Indication: HEPATIC NEOPLASM MALIGNANT
     Dosage: DAILY DOSE 800 MG
     Route: 048
     Dates: start: 20100728, end: 20101017
  2. URSA [Concomitant]
     Dosage: DAILY DOSE 400 MG
     Route: 048
     Dates: start: 20100622, end: 20100829
  3. ANTIBIO [Concomitant]
     Indication: PROPHYLAXIS
     Dosage: DAILY DOSE 300 MG
     Route: 048
     Dates: start: 20100805, end: 20101125
  4. CIPROFLOXACIN HYDROCHLORIDE [Concomitant]
     Dosage: DAILY DOSE 400 MG
     Route: 042
     Dates: start: 20100803, end: 20100827
  5. MUTERAN [Concomitant]
     Indication: PROPHYLAXIS
     Dosage: DAILY DOSE 600 MG
     Route: 048
     Dates: start: 20100622, end: 20101125
  6. NORVASC [Concomitant]
     Indication: HYPERTENSION
     Dosage: DAILY DOSE 5 MG
     Route: 048
     Dates: start: 20100622, end: 20110123
  7. THIAMINE [Concomitant]
     Indication: PROPHYLAXIS
     Dosage: DAILY DOSE 20 MG
     Route: 048
     Dates: start: 20100622, end: 20101125
  8. CEFOTAXIME SODIUM [Concomitant]
     Dosage: DAILY DOSE 6 G
     Route: 042
     Dates: start: 20100802, end: 20100827
  9. URSA [Concomitant]
     Indication: PROPHYLAXIS
     Dosage: DAILY DOSE 400 MG
     Route: 048
     Dates: start: 20100907, end: 20101125
  10. PANTOPRAZOLE SODIUM [Concomitant]
     Indication: ANTACID THERAPY
     Dosage: DAILY DOSE 40 MG
     Route: 048
     Dates: start: 20101215, end: 20110129

REACTIONS (2)
  - BLOOD BILIRUBIN ABNORMAL [None]
  - DIARRHOEA [None]
